FAERS Safety Report 23606145 (Version 2)
Quarter: 2024Q1

REPORT INFORMATION
  Report Type: Spontaneous
  Country: CA (occurrence: CA)
  Receive Date: 20240307
  Receipt Date: 20240312
  Transmission Date: 20240410
  Serious: Yes (Other)
  Sender: FDA-Public Use
  Company Number: CA-BIOVITRUM-2024-CA-003158

PATIENT
  Age: 19 Year
  Sex: Male

DRUGS (1)
  1. DOPTELET [Suspect]
     Active Substance: AVATROMBOPAG MALEATE
     Indication: Immune thrombocytopenia
     Dosage: 1 TABLET DAILY
     Route: 048
     Dates: start: 20240221

REACTIONS (13)
  - Syncope [Unknown]
  - Haematochezia [Unknown]
  - Nausea [Unknown]
  - Vomiting [Unknown]
  - Disorientation [Unknown]
  - Blood urine [Unknown]
  - Product dose omission issue [Unknown]
  - Sleep disorder [Unknown]
  - Adverse drug reaction [Unknown]
  - Lethargy [Unknown]
  - Fatigue [Unknown]
  - Diarrhoea [Unknown]
  - Drug ineffective [Unknown]

NARRATIVE: CASE EVENT DATE: 20240224
